FAERS Safety Report 13752044 (Version 1)
Quarter: 2017Q3

REPORT INFORMATION
  Report Type: Spontaneous
  Country: US (occurrence: US)
  Receive Date: 20170713
  Receipt Date: 20170713
  Transmission Date: 20171127
  Serious: No
  Sender: FDA-Public Use
  Company Number: US-PFIZER INC-2017301603

PATIENT
  Sex: Female

DRUGS (1)
  1. SULFASALAZINE. [Suspect]
     Active Substance: SULFASALAZINE
     Dosage: 1000 MG, 2X/DAY

REACTIONS (10)
  - Musculoskeletal stiffness [Unknown]
  - Nausea [Unknown]
  - Asthenia [Unknown]
  - Pain in extremity [Unknown]
  - Depression [Unknown]
  - Arthralgia [Unknown]
  - Joint swelling [Unknown]
  - Fatigue [Unknown]
  - Anxiety [Unknown]
  - Muscular weakness [Unknown]
